FAERS Safety Report 7813873-7 (Version None)
Quarter: 2011Q4

REPORT INFORMATION
  Report Type: 
  Country: None (occurrence: None)
  Receive Date: 20111011
  Receipt Date: 20110929
  Transmission Date: 20120403
  Serious: Yes (Other)
  Sender: FDA-Public Use
  Company Number: 2011SP046581

PATIENT
  Age: 27 Year
  Sex: Female
  Weight: 58.0604 kg

DRUGS (1)
  1. IMPLANON [Suspect]
     Indication: PRODUCT USED FOR UNKNOWN INDICATION
     Dates: start: 20110707, end: 20110929

REACTIONS (4)
  - SUICIDAL IDEATION [None]
  - LIBIDO DECREASED [None]
  - DEPRESSION [None]
  - PREMENSTRUAL SYNDROME [None]
